FAERS Safety Report 9399661 (Version 1)
Quarter: 2013Q3

REPORT INFORMATION
  Report Type: Spontaneous
  Country: US (occurrence: US)
  Receive Date: 20130715
  Receipt Date: 20130715
  Transmission Date: 20140515
  Serious: No
  Sender: FDA-Public Use
  Company Number: US-PFIZER INC-2013206533

PATIENT
  Age: 39 Year
  Sex: Male
  Weight: 150 kg

DRUGS (3)
  1. ZOLOFT [Suspect]
     Indication: ANXIETY
     Dosage: 50MG DAILY
     Dates: start: 20130520
  2. AMARYL [Concomitant]
     Indication: DIABETES MELLITUS
     Dosage: 4MG DAILY
  3. COREG [Concomitant]
     Indication: HYPERTENSION
     Dosage: 25MG DAILY

REACTIONS (2)
  - Dry mouth [Not Recovered/Not Resolved]
  - Visual impairment [Not Recovered/Not Resolved]
